FAERS Safety Report 10035167 (Version 1)
Quarter: 2014Q1

REPORT INFORMATION
  Report Type: Spontaneous
  Country: US (occurrence: None)
  Receive Date: 20140306
  Receipt Date: 20140306
  Transmission Date: 20141002
  Serious: Yes (Other)
  Sender: FDA-Public Use
  Company Number: 163-21880-13062599

PATIENT
  Age: 85 Year
  Sex: Male
  Weight: 80.74 kg

DRUGS (17)
  1. REVLIMID [Suspect]
     Indication: MYELODYSPLASTIC SYNDROME
     Dosage: 25 MG, 21 IN 28 D, PO  03/11/2013 - ONGOING THERAPY DATES
     Route: 048
     Dates: start: 20100220
  2. CALCIUM PLUS D (OS-CAL) [Concomitant]
  3. COLACE (DOCUSATE SODIUM) [Concomitant]
  4. FINASTERIDE [Concomitant]
  5. FLOMAX (TAMSULOSIN HYDROCHLORIDE) [Concomitant]
  6. FLUDROCORT (FLUDROCORTISONE) [Concomitant]
  7. GLUCOSAMINE CHONDROITIN (GLUCOSAMINE W/CHONDROITIN SULFATE) [Concomitant]
  8. HYDROXYCHLOR (HYDROXYCHLOROQUINE) [Concomitant]
  9. LOVENOX (HEPARIN-FRACTION, SODIUM SALT) [Concomitant]
  10. MIRALAX (MACROGOL) [Concomitant]
  11. MULTIVITAMINS [Concomitant]
  12. NYSTATIN [Concomitant]
  13. PANTOPRAZOLE [Concomitant]
  14. PREDNISONE [Concomitant]
  15. TRAMADOL [Concomitant]
  16. TYLENOL (PARACETAMOL) [Concomitant]
  17. VITAMIN D (ERGOCALCIFEROL) [Concomitant]

REACTIONS (2)
  - Keratoacanthoma [None]
  - Neoplasm progression [None]
